FAERS Safety Report 7212958-6 (Version None)
Quarter: 2011Q1

REPORT INFORMATION
  Report Type: 
  Country: None (occurrence: None)
  Receive Date: 20110106
  Receipt Date: 20101220
  Transmission Date: 20110831
  Serious: Yes (Congenital Anomaly)
  Sender: FDA-Public Use
  Company Number: A0680249A

PATIENT
  Sex: Female
  Weight: 3.4 kg

DRUGS (2)
  1. PAXIL [Suspect]
     Indication: DEPRESSION
  2. THORAZINE [Concomitant]

REACTIONS (4)
  - DRUG EXPOSURE DURING PREGNANCY [None]
  - ATRIAL SEPTAL DEFECT [None]
  - PATENT DUCTUS ARTERIOSUS [None]
  - CARDIAC ANEURYSM [None]
